FAERS Safety Report 7797590-8 (Version None)
Quarter: 2011Q4

REPORT INFORMATION
  Report Type: 
  Country: None (occurrence: None)
  Receive Date: 20111005
  Receipt Date: 20110928
  Transmission Date: 20120403
  Serious: Yes (Other)
  Sender: FDA-Public Use
  Company Number: DE-UCBSA-042365

PATIENT
  Sex: Male

DRUGS (3)
  1. LEVETIRACETAM [Suspect]
     Dosage: 1000 - 0 - 1000
     Dates: start: 20110601
  2. KEPPRA [Suspect]
     Dates: end: 20110601
  3. PHENYTOIN [Concomitant]

REACTIONS (3)
  - RESTLESSNESS [None]
  - GRAND MAL CONVULSION [None]
  - DYSPNOEA [None]
